FAERS Safety Report 4406377-5 (Version None)
Quarter: 2004Q3

REPORT INFORMATION
  Report Type: 
  Country: None (occurrence: None)
  Receive Date: 20040723
  Receipt Date: 20030710
  Transmission Date: 20050211
  Serious: No
  Sender: FDA-Public Use
  Company Number: US-GLAXOSMITHKLINE-A0416168A

PATIENT
  Age: 59 Year
  Sex: Female

DRUGS (2)
  1. AVANDIA [Suspect]
     Dosage: 4MG TWICE PER DAY
     Route: 048
     Dates: start: 20010101
  2. GLUCOPHAGE [Concomitant]

REACTIONS (8)
  - FATIGUE [None]
  - JOINT SWELLING [None]
  - MUSCLE FATIGUE [None]
  - OEDEMA PERIPHERAL [None]
  - PAIN IN EXTREMITY [None]
  - PARAESTHESIA [None]
  - PRURITUS [None]
  - WEIGHT INCREASED [None]
